FAERS Safety Report 4931841-X (Version None)
Quarter: 2006Q1

REPORT INFORMATION
  Report Type: 
  Country: None (occurrence: None)
  Receive Date: 20060303
  Receipt Date: 20060216
  Transmission Date: 20060701
  Serious: Yes (Hospitalization)
  Sender: FDA-Public Use
  Company Number: CH-JNJFOC-20060300686

PATIENT
  Age: 47 Year
  Sex: Male

DRUGS (3)
  1. TRAMADOL HCL [Suspect]
     Indication: SUICIDE ATTEMPT
     Dosage: DURATION: ONCE
     Route: 048
  2. ESCITALOPRAM OXALATE [Suspect]
     Indication: DEPRESSION
     Route: 048
  3. LEXOTANIL [Concomitant]
     Indication: DEPRESSION
     Route: 048

REACTIONS (6)
  - BLOOD SODIUM DECREASED [None]
  - DRUG INTERACTION [None]
  - INTENTIONAL OVERDOSE [None]
  - MULTIPLE DRUG OVERDOSE INTENTIONAL [None]
  - SEROTONIN SYNDROME [None]
  - SUICIDE ATTEMPT [None]
